FAERS Safety Report 4340291-9 (Version None)
Quarter: 2004Q2

REPORT INFORMATION
  Report Type: 
  Country: None (occurrence: None)
  Receive Date: 20040405
  Receipt Date: 20040318
  Transmission Date: 20050107
  Serious: Yes (Hospitalization)
  Sender: FDA-Public Use
  Company Number: 2004SA000060

PATIENT
  Age: 32 Year
  Sex: Male
  Weight: 118.4 kg

DRUGS (4)
  1. THYMOGLOBULIN [Suspect]
     Indication: TRANSPLANT
     Dosage: 100 MG; DAILY
     Dates: start: 20031028, end: 20031104
  2. SOLU-MEDROL [Concomitant]
  3. CELLCEPT [Concomitant]
  4. GENERAL ANESTHESIA [Concomitant]

REACTIONS (3)
  - DYSPNOEA [None]
  - PROCEDURAL COMPLICATION [None]
  - PULMONARY OEDEMA [None]
